FAERS Safety Report 5209704-4 (Version None)
Quarter: 2007Q1

REPORT INFORMATION
  Report Type: 
  Country: None (occurrence: None)
  Receive Date: 20070111
  Receipt Date: 20070103
  Transmission Date: 20070707
  Serious: Yes (Other)
  Sender: FDA-Public Use
  Company Number: GXKR2006DE07750

PATIENT
  Age: 66 Year
  Sex: Female

DRUGS (5)
  1. MIRTAZAPIN BETA [Suspect]
     Indication: DEPRESSION
     Dosage: 30 MG, QD, ORAL
     Route: 048
     Dates: start: 20060301
  2. METOPROLOL TARTRATE [Concomitant]
  3. ASPIRIN [Concomitant]
  4. CAPTOPRIL AND HYDROCHLOROTHIAZIDE [Concomitant]
  5. ALLOPURINOL [Concomitant]

REACTIONS (1)
  - HEPATIC STEATOSIS [None]
